FAERS Safety Report 14075427 (Version 1)
Quarter: 2017Q4

REPORT INFORMATION
  Report Type: Spontaneous
  Country: US (occurrence: US)
  Receive Date: 20171010
  Receipt Date: 20171010
  Transmission Date: 20180321
  Serious: No
  Sender: FDA-Public Use
  Company Number: US-MYLANLABS-2016M1056062

PATIENT
  Age: 60 Year
  Sex: Male

DRUGS (3)
  1. MIDODRINE [Suspect]
     Active Substance: MIDODRINE
     Indication: BLOOD PRESSURE MANAGEMENT
     Dosage: UNK
  2. DROXIDOPA [Suspect]
     Active Substance: DROXIDOPA
     Indication: PRODUCT USED FOR UNKNOWN INDICATION
     Dosage: UNK
     Dates: start: 20161116
  3. FLUDROCORTISONE [Suspect]
     Active Substance: FLUDROCORTISONE
     Indication: BLOOD PRESSURE MANAGEMENT
     Dosage: UNK

REACTIONS (5)
  - Vision blurred [Unknown]
  - Blood pressure increased [Unknown]
  - Malaise [Unknown]
  - Musculoskeletal discomfort [Unknown]
  - Blood pressure orthostatic decreased [Unknown]

NARRATIVE: CASE EVENT DATE: 20161122
